FAERS Safety Report 4821349-4 (Version None)
Quarter: 2005Q4

REPORT INFORMATION
  Report Type: 
  Country: None (occurrence: None)
  Receive Date: 20051107
  Receipt Date: 20050926
  Transmission Date: 20060501
  Serious: No
  Sender: FDA-Public Use
  Company Number: US-GLAXOSMITHKLINE-A0575901A

PATIENT
  Age: 65 Year
  Sex: Female

DRUGS (14)
  1. AVANDAMET [Suspect]
     Dosage: 1TAB TWICE PER DAY
     Route: 048
     Dates: start: 20050601, end: 20050924
  2. AMARYL [Concomitant]
  3. VITAMINS [Concomitant]
  4. CALCIUM GLUCONATE [Concomitant]
  5. CITALOPRAM [Concomitant]
  6. ZYPREXA [Concomitant]
  7. TRILEPTAL [Concomitant]
  8. DOCUSATE [Concomitant]
  9. HYDROCODONE BITARTRATE + ACETAMINOPHEN [Concomitant]
  10. OXYCODONE [Concomitant]
  11. LIDODERM GEL [Concomitant]
  12. DORYX [Concomitant]
  13. FLONASE [Concomitant]
  14. AVAPRO [Concomitant]

REACTIONS (7)
  - FATIGUE [None]
  - HEADACHE [None]
  - HYPERTENSION [None]
  - NAUSEA [None]
  - POLLAKIURIA [None]
  - PROTEIN URINE PRESENT [None]
  - RETCHING [None]
